FAERS Safety Report 16071518 (Version 1)
Quarter: 2019Q1

REPORT INFORMATION
  Report Type: Spontaneous
  Country: US (occurrence: US)
  Receive Date: 20190314
  Receipt Date: 20190314
  Transmission Date: 20190418
  Serious: No
  Sender: FDA-Public Use
  Company Number: US-JNJFOC-20190223190

PATIENT
  Age: 8 Decade
  Sex: Female
  Weight: 54.43 kg

DRUGS (5)
  1. TRIAMTERENE. [Concomitant]
     Active Substance: TRIAMTERENE
     Indication: BLOOD PRESSURE MEASUREMENT
     Route: 065
  2. BABY ASPIRIN [Concomitant]
     Active Substance: ASPIRIN
     Indication: PRODUCT USED FOR UNKNOWN INDICATION
     Route: 065
  3. WOMENS ROGAINE UNSCENTED [Suspect]
     Active Substance: MINOXIDIL
     Indication: ALOPECIA
     Dosage: JUST A SQUIRT AFTER MEASURING THE 1/2 CAPFUL FOR A WHILE, THEN KNEW HOW MUCH WAS 1/2 CAPFUL
     Route: 061
  4. SYNTHROID [Concomitant]
     Active Substance: LEVOTHYROXINE SODIUM
     Indication: HYPOTHYROIDISM
     Route: 065
  5. WOMENS ROGAINE UNSCENTED [Suspect]
     Active Substance: MINOXIDIL
     Route: 061

REACTIONS (4)
  - Wrong technique in product usage process [Unknown]
  - Pruritus [Recovered/Resolved]
  - Incorrect dose administered [Unknown]
  - Scab [Recovered/Resolved]

NARRATIVE: CASE EVENT DATE: 2018
